FAERS Safety Report 15679646 (Version 2)
Quarter: 2018Q4

REPORT INFORMATION
  Report Type: Spontaneous
  Country: BR (occurrence: BR)
  Receive Date: 20181203
  Receipt Date: 20181221
  Transmission Date: 20190205
  Serious: Yes (Death, Hospitalization, Other)
  Sender: FDA-Public Use
  Company Number: BR-ASTRAZENECA-2017SE66778

PATIENT
  Age: 27746 Day
  Sex: Male

DRUGS (4)
  1. ALENIA [Concomitant]
     Active Substance: BUDESONIDE\FORMOTEROL FUMARATE
     Dosage: IN THE MORNING AND AT NIGHT
  2. SYMBICORT [Suspect]
     Active Substance: BUDESONIDE\FORMOTEROL FUMARATE DIHYDRATE
     Indication: EMPHYSEMA
     Dosage: TURBUHALER DOSE AS REQUIRED AS REQUIRED
     Route: 055
  3. SYMBICORT [Suspect]
     Active Substance: BUDESONIDE\FORMOTEROL FUMARATE DIHYDRATE
     Indication: EMPHYSEMA
     Dosage: 320/9MCG, UNKNOWN FREQUENCY UNKNOWN
     Route: 055
  4. SYMBICORT [Suspect]
     Active Substance: BUDESONIDE\FORMOTEROL FUMARATE DIHYDRATE
     Indication: EMPHYSEMA
     Dosage: DOSE AS REQUIRED AS REQUIRED
     Route: 055

REACTIONS (9)
  - Dyspnoea [Not Recovered/Not Resolved]
  - Product administration error [Not Recovered/Not Resolved]
  - Blood pressure abnormal [Unknown]
  - Malaise [Not Recovered/Not Resolved]
  - Atrioventricular block [Not Recovered/Not Resolved]
  - Swelling [Unknown]
  - Bronchospasm [Not Recovered/Not Resolved]
  - Cardiac arrest [Fatal]
  - Device dispensing error [Not Recovered/Not Resolved]

NARRATIVE: CASE EVENT DATE: 20181205
